FAERS Safety Report 25734749 (Version 1)
Quarter: 2025Q3

REPORT INFORMATION
  Report Type: Spontaneous
  Country: US (occurrence: None)
  Receive Date: 20250828
  Receipt Date: 20250828
  Transmission Date: 20251021
  Serious: Yes (Death, Hospitalization)
  Sender: FDA-CTU
  Company Number: None

PATIENT
  Age: 67 Year
  Sex: Male
  Weight: 159 kg

DRUGS (3)
  1. CARBOPLATIN [Suspect]
     Active Substance: CARBOPLATIN
     Dates: start: 20240805
  2. DURVALUMAB [Suspect]
     Active Substance: DURVALUMAB
     Dates: start: 20250417
  3. TAXOL [Suspect]
     Active Substance: PACLITAXEL
     Dates: start: 20240805

REACTIONS (6)
  - Chronic respiratory failure [None]
  - Hypercapnia [None]
  - Pneumonia [None]
  - Shock [None]
  - Secretion discharge [None]
  - Pneumonitis [None]

NARRATIVE: CASE EVENT DATE: 20250816
